FAERS Safety Report 10363729 (Version 2)
Quarter: 2014Q3

REPORT INFORMATION
  Report Type: Spontaneous
  Country: CA (occurrence: CA)
  Receive Date: 20140805
  Receipt Date: 20140917
  Transmission Date: 20150326
  Serious: Yes (Other)
  Sender: FDA-Public Use
  Company Number: CA-BAXTER-2014BAX043048

PATIENT
  Age: 65 Year
  Sex: Female

DRUGS (2)
  1. BENADRYL [Concomitant]
     Active Substance: DIPHENHYDRAMINE HYDROCHLORIDE
     Indication: PREMEDICATION
     Route: 065
  2. GAMMAGARD LIQUID [Suspect]
     Active Substance: HUMAN IMMUNOGLOBULIN G
     Indication: PRODUCT USED FOR UNKNOWN INDICATION
     Dosage: FRACTION 1/4
     Route: 042
     Dates: start: 20140530, end: 20140530

REACTIONS (9)
  - Nausea [Unknown]
  - Malaise [Unknown]
  - Blood pressure increased [Unknown]
  - Tachycardia [Unknown]
  - Chest pain [Unknown]
  - Vomiting [Unknown]
  - Anxiety [Unknown]
  - Asthenia [Unknown]
  - Tremor [Unknown]

NARRATIVE: CASE EVENT DATE: 20140530
